FAERS Safety Report 20781284 (Version 2)
Quarter: 2022Q2

REPORT INFORMATION
  Report Type: Spontaneous
  Country: US (occurrence: US)
  Receive Date: 20220504
  Receipt Date: 20220518
  Transmission Date: 20220721
  Serious: No
  Sender: FDA-Public Use
  Company Number: US-BEH-2022144934

PATIENT
  Age: 49 Year
  Sex: Male

DRUGS (2)
  1. HIZENTRA [Suspect]
     Active Substance: HUMAN IMMUNOGLOBULIN G
     Indication: Multifocal motor neuropathy
     Dosage: 20 GRAM, QW
     Route: 058
     Dates: start: 20220406
  2. HIZENTRA [Suspect]
     Active Substance: HUMAN IMMUNOGLOBULIN G
     Indication: Chronic inflammatory demyelinating polyradiculoneuropathy

REACTIONS (7)
  - Headache [Unknown]
  - Influenza like illness [Unknown]
  - Vision blurred [Unknown]
  - No adverse event [Unknown]
  - Off label use [Unknown]
  - Taste disorder [Unknown]
  - Parosmia [Unknown]

NARRATIVE: CASE EVENT DATE: 20220406
